FAERS Safety Report 19243530 (Version 1)
Quarter: 2021Q2

REPORT INFORMATION
  Report Type: Report from Study
  Country: US (occurrence: US)
  Receive Date: 20210511
  Receipt Date: 20210511
  Transmission Date: 20210717
  Serious: Yes (Hospitalization, Other)
  Sender: FDA-Public Use
  Company Number: US-SHIRE-US201929906

PATIENT
  Age: 85 Year
  Sex: Male

DRUGS (8)
  1. TEDUGLUTIDE [Suspect]
     Active Substance: TEDUGLUTIDE
     Indication: SHORT-BOWEL SYNDROME
     Dosage: 3.76 MILLIGRAM, QD
     Route: 058
     Dates: start: 20180113
  2. TEDUGLUTIDE [Suspect]
     Active Substance: TEDUGLUTIDE
     Dosage: 3.76 MILLIGRAM, QD
     Route: 058
     Dates: start: 20200213
  3. TEDUGLUTIDE [Suspect]
     Active Substance: TEDUGLUTIDE
     Dosage: 3.76 MILLIGRAM, QD
     Route: 058
     Dates: start: 20200213
  4. TEDUGLUTIDE [Suspect]
     Active Substance: TEDUGLUTIDE
     Dosage: 3.76 MILLIGRAM, QD
     Route: 058
     Dates: start: 20200213
  5. TEDUGLUTIDE [Suspect]
     Active Substance: TEDUGLUTIDE
     Dosage: 3.76 MILLIGRAM, QD
     Route: 058
     Dates: start: 20200213
  6. TEDUGLUTIDE [Suspect]
     Active Substance: TEDUGLUTIDE
     Indication: SHORT-BOWEL SYNDROME
     Dosage: 3.76 MILLIGRAM, QD
     Route: 058
     Dates: start: 20180113
  7. TEDUGLUTIDE [Suspect]
     Active Substance: TEDUGLUTIDE
     Indication: SHORT-BOWEL SYNDROME
     Dosage: 3.76 MILLIGRAM, QD
     Route: 058
     Dates: start: 20180113
  8. TEDUGLUTIDE [Suspect]
     Active Substance: TEDUGLUTIDE
     Indication: SHORT-BOWEL SYNDROME
     Dosage: 3.76 MILLIGRAM, QD
     Route: 058
     Dates: start: 20180113

REACTIONS (4)
  - Injection site reaction [Unknown]
  - Hip fracture [Unknown]
  - Rash [Unknown]
  - Urticaria [Unknown]

NARRATIVE: CASE EVENT DATE: 20190902
